FAERS Safety Report 4524899-3 (Version None)
Quarter: 2004Q4

REPORT INFORMATION
  Report Type: 
  Country: None (occurrence: None)
  Receive Date: 20041213
  Receipt Date: 20041112
  Transmission Date: 20050328
  Serious: Yes (Death, Other)
  Sender: FDA-Public Use
  Company Number: 200418802US

PATIENT
  Age: 74 Year
  Sex: Male
  Weight: 80 kg

DRUGS (4)
  1. TAXOTERE [Suspect]
     Indication: PANCREATIC CARCINOMA
     Route: 042
     Dates: start: 20040916, end: 20041029
  2. ENOXAPARIN [Suspect]
     Indication: PANCREATIC CARCINOMA
     Dosage: DOSE: TOTAL DOSE FOR 2 CYCLES: 560 MG
     Route: 058
     Dates: start: 20041007, end: 20041104
  3. IRINOTECAN HCL [Suspect]
     Indication: PANCREATIC CARCINOMA
     Dosage: DOSE: TOTAL DOSE 174 MG
     Route: 042
     Dates: start: 20041029, end: 20041029
  4. CETUXIMAB [Suspect]
     Indication: PANCREATIC CARCINOMA
     Dosage: DOSE: 483 MG GIVEN ON 22-OCT-04, 29-OCT-04, AND 05-NOV-04. TOTAL=1449MG
     Route: 042
     Dates: start: 20041105, end: 20041105

REACTIONS (8)
  - CREATININE RENAL CLEARANCE DECREASED [None]
  - DEHYDRATION [None]
  - DIARRHOEA [None]
  - DISEASE PROGRESSION [None]
  - HYPERKALAEMIA [None]
  - HYPOMAGNESAEMIA [None]
  - HYPONATRAEMIA [None]
  - PANCREATIC CARCINOMA [None]
